FAERS Safety Report 19508934 (Version 3)
Quarter: 2023Q2

REPORT INFORMATION
  Report Type: Report from Study
  Country: KR (occurrence: KR)
  Receive Date: 20210708
  Receipt Date: 20230518
  Transmission Date: 20230722
  Serious: Yes (Hospitalization)
  Sender: FDA-Public Use
  Company Number: KR-AMGEN-KORNI2021102926

PATIENT
  Age: 54 Year
  Sex: Female
  Weight: 73 kg

DRUGS (16)
  1. CARFILZOMIB [Suspect]
     Active Substance: CARFILZOMIB
     Indication: Plasma cell myeloma
     Dosage: 49 MILLIGRAM
     Route: 042
     Dates: start: 20200428
  2. DEXAMETHASONE [Concomitant]
     Active Substance: DEXAMETHASONE
     Indication: Plasma cell myeloma
     Dosage: 5-20 MILLIGRAM
     Dates: start: 20210204
  3. LENALIDOMIDE [Concomitant]
     Active Substance: LENALIDOMIDE
     Indication: Plasma cell myeloma
     Dosage: 15 MILLIGRAM
     Dates: start: 20210204
  4. SENSIVAL [Concomitant]
     Dosage: 25 MILLIGRAM
     Dates: start: 20190517, end: 20210621
  5. FLUCOZOLE [Concomitant]
     Dosage: 100 MILLIGRAM
     Dates: start: 20190520
  6. SULFAMETHOXAZOLE\TRIMETHOPRIM [Concomitant]
     Active Substance: SULFAMETHOXAZOLE\TRIMETHOPRIM
     Dosage: 1 UNK
     Dates: start: 20190520
  7. Vacrax [Concomitant]
     Dosage: 400 MILLIGRAM
     Dates: start: 20190520
  8. GASPIRAN [Concomitant]
     Dosage: 5 MILLIGRAM
     Dates: start: 20190530
  9. LEFEXIN [Concomitant]
     Dosage: 100 MILLIGRAM
     Dates: start: 20190530
  10. DULOXTA [Concomitant]
     Dosage: 30 MILLIGRAM
     Dates: start: 20190909, end: 20211013
  11. K CAB [Concomitant]
     Dosage: 50 MILLIGRAM
     Dates: start: 20191216
  12. ASPIRIN [Concomitant]
     Active Substance: ASPIRIN
     Dosage: 100 MILLIGRAM
     Dates: start: 20200428
  13. CODAEWON [Concomitant]
     Dosage: 1 UNK
     Dates: start: 20210527, end: 20210707
  14. Godex [Concomitant]
     Dosage: 2 UNK
     Dates: start: 20210527, end: 20210614
  15. LASIX [Concomitant]
     Active Substance: FUROSEMIDE
     Dosage: 10-20 MILLIGRAM
     Dates: start: 20200428
  16. Mago [Concomitant]
     Dosage: 250-500 MILLIGRAM
     Dates: start: 20201029

REACTIONS (1)
  - Cardiac failure chronic [Recovered/Resolved]

NARRATIVE: CASE EVENT DATE: 20210529
